FAERS Safety Report 11075217 (Version 1)
Quarter: 2015Q2

REPORT INFORMATION
  Report Type: Spontaneous
  Country: US (occurrence: None)
  Receive Date: 20150428
  Receipt Date: 20150428
  Transmission Date: 20150821
  Serious: Yes (Other)
  Sender: FDA-Public Use
  Company Number: None

PATIENT
  Age: 61 Year
  Sex: Male
  Weight: 105.24 kg

DRUGS (5)
  1. LOSARTAN [Concomitant]
     Active Substance: LOSARTAN
  2. GLYBURIDE. [Concomitant]
     Active Substance: GLYBURIDE
  3. AMLODIPINE BESYLATE. [Concomitant]
     Active Substance: AMLODIPINE BESYLATE
  4. FARXIGA [Suspect]
     Active Substance: DAPAGLIFLOZIN PROPANEDIOL
     Indication: TYPE 2 DIABETES MELLITUS
     Dosage: 7 TABLETS PER BOX 1 DAILY BY MOUTH
     Route: 048
     Dates: start: 20150409, end: 20150411
  5. METFORMIN [Concomitant]
     Active Substance: METFORMIN HYDROCHLORIDE

REACTIONS (9)
  - Oropharyngeal pain [None]
  - Dysphagia [None]
  - Paraesthesia [None]
  - Nausea [None]
  - Somnolence [None]
  - Urticaria [None]
  - Dry mouth [None]
  - Joint swelling [None]
  - Headache [None]

NARRATIVE: CASE EVENT DATE: 20150410
